FAERS Safety Report 11801517 (Version 1)
Quarter: 2015Q4

REPORT INFORMATION
  Report Type: Report from Study
  Country: US (occurrence: US)
  Receive Date: 20151204
  Receipt Date: 20151204
  Transmission Date: 20160305
  Serious: Yes (Other)
  Sender: FDA-Public Use
  Company Number: US-SUN PHARMACEUTICAL INDUSTRIES LTD-2015US-102205

PATIENT

DRUGS (1)
  1. ABSORICA [Suspect]
     Active Substance: ISOTRETINOIN
     Indication: ACNE
     Dosage: UNK, BID
     Route: 048

REACTIONS (2)
  - Corneal neovascularisation [Recovering/Resolving]
  - Eye infection [Recovered/Resolved]

NARRATIVE: CASE EVENT DATE: 20150810
